FAERS Safety Report 9363014 (Version 1)
Quarter: 2013Q2

REPORT INFORMATION
  Report Type: Spontaneous
  Country: US (occurrence: None)
  Receive Date: 20130621
  Receipt Date: 20130621
  Transmission Date: 20140414
  Serious: Yes (Hospitalization)
  Sender: FDA-Public Use
  Company Number: None

PATIENT
  Age: 76 Year
  Sex: Male
  Weight: 63.6 kg

DRUGS (1)
  1. DIGOXIN [Suspect]
     Indication: CARDIAC FAILURE CONGESTIVE
     Dosage: FROM AT LEAST APRIL 2013
     Route: 048

REACTIONS (11)
  - Asthenia [None]
  - Gait disturbance [None]
  - Vomiting [None]
  - Hypophagia [None]
  - Skin warm [None]
  - Dry skin [None]
  - Pallor [None]
  - Toxicity to various agents [None]
  - Dehydration [None]
  - Renal failure [None]
  - Cardioactive drug level increased [None]
